FAERS Safety Report 4587510-1 (Version None)
Quarter: 2005Q1

REPORT INFORMATION
  Report Type: 
  Country: None (occurrence: None)
  Receive Date: 20050125
  Receipt Date: 20040921
  Transmission Date: 20050727
  Serious: No
  Sender: FDA-Public Use
  Company Number: USA040876997

PATIENT
  Age: 74 Year
  Sex: Female
  Weight: 35 kg

DRUGS (8)
  1. FORTEO [Suspect]
     Indication: BONE DISORDER
     Dosage: 20 UG/1 DAY
     Dates: start: 20040824
  2. MULTIVITAMIN [Concomitant]
  3. CALCIUM GLUCONATE [Concomitant]
  4. NITROGLYCERIN /SCH/(GLYCERYL TRINITRATE) [Concomitant]
  5. ASPIRIN [Concomitant]
  6. DURAGESIC (FENTANYL) [Concomitant]
  7. ZOLOFT [Concomitant]
  8. ACIPHEX [Concomitant]

REACTIONS (6)
  - ASTHENIA [None]
  - CHEST PAIN [None]
  - FATIGUE [None]
  - HEAD DISCOMFORT [None]
  - HEADACHE [None]
  - PALPITATIONS [None]
